FAERS Safety Report 5312144-0 (Version None)
Quarter: 2007Q2

REPORT INFORMATION
  Report Type: 
  Country: None (occurrence: None)
  Receive Date: 20070430
  Receipt Date: 20060815
  Transmission Date: 20071010
  Serious: No
  Sender: FDA-Public Use
  Company Number: 2006UW16263

PATIENT
  Age: 60 Year
  Sex: Female
  Weight: 87.5 kg

DRUGS (9)
  1. NEXIUM [Suspect]
     Route: 048
  2. AMARYL [Concomitant]
  3. PLAVIX [Concomitant]
  4. LEVOTHYROXINE SODIUM [Concomitant]
  5. TRICOR [Concomitant]
  6. WELLCHOL [Concomitant]
  7. DIOVAN [Concomitant]
  8. NORVASC [Concomitant]
  9. VITAMINS [Concomitant]

REACTIONS (1)
  - BLOOD GLUCOSE INCREASED [None]
